FAERS Safety Report 11458340 (Version 1)
Quarter: 2015Q3

REPORT INFORMATION
  Report Type: Report from Study
  Country: BR (occurrence: BR)
  Receive Date: 20150904
  Receipt Date: 20150904
  Transmission Date: 20151125
  Serious: Yes (Life-Threatening)
  Sender: FDA-Public Use
  Company Number: PHHY2015BR104409

PATIENT
  Sex: Female
  Weight: 44 kg

DRUGS (2)
  1. DESFERAL [Suspect]
     Active Substance: DEFEROXAMINE MESYLATE
     Indication: THALASSAEMIA BETA
     Route: 065
  2. HYDROXYUREA. [Concomitant]
     Active Substance: HYDROXYUREA
     Indication: WHITE BLOOD CELL COUNT INCREASED
     Dosage: ALTERNATING 1 TABLET OR 2 TABLETS EVERY OTHER DAY
     Route: 048

REACTIONS (4)
  - Respiratory failure [Unknown]
  - Respiratory arrest [Unknown]
  - Dyspnoea [Unknown]
  - Drug intolerance [Unknown]
